FAERS Safety Report 14380450 (Version 1)
Quarter: 2018Q1

REPORT INFORMATION
  Report Type: Spontaneous
  Country: US (occurrence: US)
  Receive Date: 20180112
  Receipt Date: 20180112
  Transmission Date: 20180509
  Serious: Yes (Hospitalization, Other)
  Sender: FDA-Public Use
  Company Number: US-GLAXOSMITHKLINE-US2018003353

PATIENT
  Age: 66 Year
  Sex: Male

DRUGS (16)
  1. HUMALOG [Concomitant]
     Active Substance: INSULIN LISPRO
  2. ATORVASTATIN [Concomitant]
     Active Substance: ATORVASTATIN
  3. DOXAZOSIN [Concomitant]
     Active Substance: DOXAZOSIN\DOXAZOSIN MESYLATE
  4. MAGNESIUM OXIDE. [Concomitant]
     Active Substance: MAGNESIUM OXIDE
  5. PREDNISONE. [Concomitant]
     Active Substance: PREDNISONE
  6. CALCIUM WITH VITAMIN D [Concomitant]
     Active Substance: CALCIUM\VITAMIN D
  7. MYCOPHENOLATE [Concomitant]
     Active Substance: MYCOPHENOLIC ACID
  8. TACROLIMUS. [Concomitant]
     Active Substance: TACROLIMUS
  9. TAMSULOSIN [Concomitant]
     Active Substance: TAMSULOSIN
  10. VALGANCICLOVIR. [Concomitant]
     Active Substance: VALGANCICLOVIR
  11. LANTUS [Concomitant]
     Active Substance: INSULIN GLARGINE
  12. CHOLECALCIFEROL [Concomitant]
     Active Substance: CHOLECALCIFEROL
  13. LEVOTHYROXINE. [Concomitant]
     Active Substance: LEVOTHYROXINE
  14. MEPRON [Suspect]
     Active Substance: ATOVAQUONE
     Indication: ANTIFUNGAL PROPHYLAXIS
     Dosage: 1500 MG, QD
     Route: 048
     Dates: start: 20171214
  15. FAMOTIDINE. [Concomitant]
     Active Substance: FAMOTIDINE
  16. NYSTATIN. [Concomitant]
     Active Substance: NYSTATIN

REACTIONS (3)
  - Rhinovirus infection [Recovering/Resolving]
  - Gastroenteritis norovirus [Recovering/Resolving]
  - Upper respiratory tract infection [Recovering/Resolving]

NARRATIVE: CASE EVENT DATE: 20171228
